FAERS Safety Report 15561002 (Version 2)
Quarter: 2018Q4

REPORT INFORMATION
  Report Type: Spontaneous
  Country: US (occurrence: US)
  Receive Date: 20181029
  Receipt Date: 20181030
  Transmission Date: 20190205
  Serious: Yes (Other)
  Sender: FDA-Public Use
  Company Number: US-PFIZER INC-2018437216

PATIENT
  Age: 75 Year
  Sex: Male
  Weight: 66.68 kg

DRUGS (2)
  1. MYLOTARG [Suspect]
     Active Substance: GEMTUZUMAB OZOGAMICIN
     Indication: MYELOID LEUKAEMIA
     Dosage: 6 MG/M2, ON DAY 1 AND DAY 8
     Route: 042
     Dates: start: 20181011
  2. MYLOTARG [Suspect]
     Active Substance: GEMTUZUMAB OZOGAMICIN
     Dosage: 3 MG/M2, ON DAY 8
     Dates: start: 20181018

REACTIONS (6)
  - Angina bullosa haemorrhagica [Unknown]
  - Stomatitis [Not Recovered/Not Resolved]
  - Thrombocytopenia [Not Recovered/Not Resolved]
  - Haemorrhage [Not Recovered/Not Resolved]
  - Blood blister [Not Recovered/Not Resolved]
  - Neutropenia [Unknown]

NARRATIVE: CASE EVENT DATE: 20181023
